APPROVED DRUG PRODUCT: MICONAZOLE NITRATE
Active Ingredient: MICONAZOLE NITRATE
Strength: 2%
Dosage Form/Route: CREAM;VAGINAL
Application: A074136 | Product #001
Applicant: TEVA PHARMACEUTICALS USA INC
Approved: Jan 4, 1995 | RLD: No | RS: No | Type: DISCN